FAERS Safety Report 7546626-8 (Version None)
Quarter: 2011Q2

REPORT INFORMATION
  Report Type: 
  Country: None (occurrence: None)
  Receive Date: 20110614
  Receipt Date: 20110608
  Transmission Date: 20111010
  Serious: Yes (Hospitalization)
  Sender: FDA-Public Use
  Company Number: US-B.I. PHARMACEUTICALS,INC./RIDGEFIELD-2011-BP-12960BP

PATIENT
  Age: 86 Year
  Sex: Male

DRUGS (5)
  1. NORVASC [Concomitant]
  2. AVODART [Concomitant]
  3. PRADAXA [Suspect]
     Indication: HEART RATE IRREGULAR
     Route: 048
     Dates: start: 20110427
  4. TOPROL-XL [Concomitant]
  5. LIPITOR [Concomitant]

REACTIONS (2)
  - DYSPNOEA [None]
  - ANAEMIA [None]
